FAERS Safety Report 25775571 (Version 1)
Quarter: 2025Q3

REPORT INFORMATION
  Report Type: Spontaneous
  Country: US (occurrence: US)
  Receive Date: 20250909
  Receipt Date: 20250909
  Transmission Date: 20251020
  Serious: Yes (Other)
  Sender: SANOFI AVENTIS
  Company Number: US-SA-2025SA267032

PATIENT
  Age: 47 Year
  Sex: Female

DRUGS (18)
  1. DUPIXENT [Suspect]
     Active Substance: DUPILUMAB
     Indication: Asthma
     Route: 058
     Dates: start: 20250128
  2. DOXYCYCLINE [Concomitant]
     Active Substance: DOXYCYCLINE
  3. FOLIC ACID [Concomitant]
     Active Substance: FOLIC ACID
  4. NUCALA [Concomitant]
     Active Substance: MEPOLIZUMAB
  5. VITAMIN D [Concomitant]
     Active Substance: VITAMIN D NOS
  6. CHAMOMILE [Concomitant]
     Active Substance: CHAMOMILE
  7. LEVALBUTEROL [Concomitant]
     Active Substance: LEVALBUTEROL
  8. CYCLOBENZAPRINE [Concomitant]
     Active Substance: CYCLOBENZAPRINE
  9. VALERIAN [Concomitant]
     Active Substance: VALERIAN
  10. ZOLOFT [Concomitant]
     Active Substance: SERTRALINE HYDROCHLORIDE
  11. L theanine [Concomitant]
  12. BUSPIRONE [Concomitant]
     Active Substance: BUSPIRONE HYDROCHLORIDE
  13. Aminobutyric acid [Concomitant]
  14. SINGULAIR [Concomitant]
     Active Substance: MONTELUKAST SODIUM
  15. MELATONIN [Concomitant]
     Active Substance: MELATONIN
  16. TRELEGY ELLIPTA [Concomitant]
     Active Substance: FLUTICASONE FUROATE\UMECLIDINIUM BROMIDE\VILANTEROL TRIFENATATE
  17. COMBIVENT [Concomitant]
     Active Substance: ALBUTEROL SULFATE\IPRATROPIUM BROMIDE
  18. MINERALS\VITAMINS [Concomitant]
     Active Substance: MINERALS\VITAMINS

REACTIONS (1)
  - Pneumonia [Unknown]

NARRATIVE: CASE EVENT DATE: 20250301
